FAERS Safety Report 19821452 (Version 1)
Quarter: 2021Q3

REPORT INFORMATION
  Report Type: Spontaneous
  Country: IT (occurrence: IT)
  Receive Date: 20210913
  Receipt Date: 20210913
  Transmission Date: 20211014
  Serious: Yes (Other)
  Sender: FDA-Public Use
  Company Number: IT-ACCORD-238282

PATIENT
  Age: 62 Year
  Sex: Male
  Weight: 74 kg

DRUGS (8)
  1. SOLDESAM [Concomitant]
     Active Substance: DEXAMETHASONE
     Route: 042
     Dates: start: 20210709, end: 20210709
  2. FLUOROURACIL AHCL [Suspect]
     Active Substance: FLUOROURACIL
     Indication: NEUROENDOCRINE CARCINOMA METASTATIC
     Route: 042
     Dates: start: 20210709, end: 20210711
  3. IRINOTECAN KABI [Concomitant]
     Active Substance: IRINOTECAN
     Indication: NEUROENDOCRINE CARCINOMA METASTATIC
     Route: 042
     Dates: start: 20210709, end: 20210709
  4. TRIMETON [Concomitant]
     Active Substance: CHLORPHENIRAMINE MALEATE
     Route: 042
     Dates: start: 20210709, end: 20210709
  5. OMEPRAZOLE. [Concomitant]
     Active Substance: OMEPRAZOLE
     Route: 042
     Dates: start: 20210709, end: 20210709
  6. FLUOROURACIL AHCL [Concomitant]
     Active Substance: FLUOROURACIL
     Indication: NEUROENDOCRINE CARCINOMA METASTATIC
     Dosage: STRENGTH: 50 MG / ML
     Route: 042
     Dates: start: 20210709, end: 20210709
  7. OXALIPLATIN ACCORD [Concomitant]
     Active Substance: OXALIPLATIN
     Indication: NEUROENDOCRINE CARCINOMA METASTATIC
     Route: 042
     Dates: start: 20210709, end: 20210709
  8. SODIUM LEVOFOLINATE MEDAC [Concomitant]
     Active Substance: LEVOLEUCOVORIN DISODIUM
     Indication: NEUROENDOCRINE CARCINOMA METASTATIC
     Route: 042
     Dates: start: 20210709, end: 20210709

REACTIONS (4)
  - Device dislocation [Recovering/Resolving]
  - Administration site extravasation [Recovering/Resolving]
  - Skin abrasion [Recovering/Resolving]
  - Infusion site erythema [Recovering/Resolving]

NARRATIVE: CASE EVENT DATE: 20210711
